FAERS Safety Report 13023448 (Version 1)
Quarter: 2016Q4

REPORT INFORMATION
  Report Type: Spontaneous
  Country: US (occurrence: US)
  Receive Date: 20161212
  Receipt Date: 20161212
  Transmission Date: 20170207
  Serious: Yes (Other)
  Sender: FDA-Public Use
  Company Number: None

PATIENT
  Age: 2 Year
  Sex: Female
  Weight: 14.4 kg

DRUGS (1)
  1. MIRALAX [Suspect]
     Active Substance: POLYETHYLENE GLYCOL 3350
     Indication: CONSTIPATION
     Dosage: ?          QUANTITY:68 GRAMS;?
     Route: 048
     Dates: start: 20161129, end: 20161203

REACTIONS (7)
  - Screaming [None]
  - Aggression [None]
  - Abdominal pain upper [None]
  - Paranoia [None]
  - Anxiety [None]
  - Crying [None]
  - Nervous system disorder [None]

NARRATIVE: CASE EVENT DATE: 20161202
